FAERS Safety Report 24445397 (Version 1)
Quarter: 2024Q4

REPORT INFORMATION
  Report Type: Spontaneous
  Country: US (occurrence: None)
  Receive Date: 20241015
  Receipt Date: 20241015
  Transmission Date: 20250115
  Serious: Yes (Other)
  Sender: Public
  Company Number: None

PATIENT
  Age: 68 Year
  Sex: Male
  Weight: 87.75 kg

DRUGS (10)
  1. VTAMA [Suspect]
     Active Substance: TAPINAROF
     Indication: Psoriasis
     Dosage: OTHER QUANTITY : 1 TUBE;?FREQUENCY : DAILY;?
     Route: 061
     Dates: start: 20241005, end: 20241013
  2. LISINOPRIL [Concomitant]
     Active Substance: LISINOPRIL
  3. SILDENAFIL [Concomitant]
     Active Substance: SILDENAFIL
  4. TREMFYA [Concomitant]
     Active Substance: GUSELKUMAB
  5. DESONIDE [Concomitant]
     Active Substance: DESONIDE
  6. FLUOCINONIDE [Concomitant]
     Active Substance: FLUOCINONIDE
  7. CLOBETASOL [Concomitant]
     Active Substance: CLOBETASOL
  8. HALOBETASOL PROPIONATE [Concomitant]
     Active Substance: HALOBETASOL PROPIONATE
  9. VITAMINS [Concomitant]
     Active Substance: VITAMINS
  10. CBD extract sleep aid [Concomitant]

REACTIONS (2)
  - Folliculitis [None]
  - Dermatitis contact [None]

NARRATIVE: CASE EVENT DATE: 20241005
